FAERS Safety Report 11288597 (Version 3)
Quarter: 2015Q3

REPORT INFORMATION
  Report Type: Spontaneous
  Country: IT (occurrence: IT)
  Receive Date: 20150721
  Receipt Date: 20150803
  Transmission Date: 20151125
  Serious: Yes (Hospitalization)
  Sender: FDA-Public Use
  Company Number: IT-PFIZER INC-2015238909

PATIENT
  Age: 67 Year
  Sex: Female

DRUGS (8)
  1. HALOPERIDOL. [Concomitant]
     Active Substance: HALOPERIDOL
     Dosage: UNK
  2. CARDURA [Concomitant]
     Active Substance: DOXAZOSIN MESYLATE
     Dosage: UNK
  3. TOTALIP [Concomitant]
     Active Substance: ATORVASTATIN
     Dosage: 1 DF, UNK
  4. GABAPENTIN. [Suspect]
     Active Substance: GABAPENTIN
     Dosage: AT TOTAL
     Route: 048
  5. TAVOR [Suspect]
     Active Substance: LORAZEPAM
     Dosage: AT TOTAL
     Route: 048
  6. LASITONE [Concomitant]
     Active Substance: FUROSEMIDE\SPIRONOLACTONE
     Dosage: UNK
  7. ZYPREXA [Concomitant]
     Active Substance: OLANZAPINE
     Dosage: 2 DF, UNK
     Route: 048
  8. ZYLORIC [Concomitant]
     Active Substance: ALLOPURINOL
     Dosage: 0.5 DF, UNK

REACTIONS (4)
  - Vomiting [Recovered/Resolved]
  - Psychomotor skills impaired [Recovered/Resolved]
  - Drug abuse [Recovered/Resolved]
  - Self injurious behaviour [Recovered/Resolved]

NARRATIVE: CASE EVENT DATE: 20080510
